FAERS Safety Report 21200533 (Version 1)
Quarter: 2022Q3

REPORT INFORMATION
  Report Type: Report from Study
  Country: US (occurrence: US)
  Receive Date: 20220811
  Receipt Date: 20220811
  Transmission Date: 20221027
  Serious: No
  Sender: FDA-Public Use
  Company Number: US-LUNDBECK-DKLU3050659

PATIENT
  Age: 46 Year
  Sex: Female

DRUGS (1)
  1. VYEPTI [Suspect]
     Active Substance: EPTINEZUMAB-JJMR
     Indication: Migraine
     Route: 041
     Dates: start: 20220520

REACTIONS (5)
  - Headache [Unknown]
  - Tension headache [Unknown]
  - Inflammation [Unknown]
  - Dizziness exertional [Unknown]
  - Nausea [Unknown]

NARRATIVE: CASE EVENT DATE: 20220520
